FAERS Safety Report 4942385-3 (Version None)
Quarter: 2006Q1

REPORT INFORMATION
  Report Type: 
  Country: None (occurrence: None)
  Receive Date: 20060313
  Receipt Date: 20050120
  Transmission Date: 20060701
  Serious: No
  Sender: FDA-Public Use
  Company Number: US-GLAXOSMITHKLINE-A0541448A

PATIENT
  Age: 40 Year
  Sex: Male

DRUGS (2)
  1. NICORETTE [Suspect]
     Indication: NICOTINE DEPENDENCE
  2. NICORETTE [Suspect]
     Indication: NICOTINE DEPENDENCE

REACTIONS (5)
  - DRUG ABUSER [None]
  - DRUG WITHDRAWAL SYNDROME [None]
  - GASTROOESOPHAGEAL REFLUX DISEASE [None]
  - INTENTIONAL DRUG MISUSE [None]
  - NICOTINE DEPENDENCE [None]
